FAERS Safety Report 5645025-3 (Version None)
Quarter: 2008Q1

REPORT INFORMATION
  Report Type: 
  Country: None (occurrence: None)
  Receive Date: 20080229
  Receipt Date: 20080225
  Transmission Date: 20080703
  Serious: Yes (Hospitalization)
  Sender: FDA-Public Use
  Company Number: US-ASTRAZENECA-2007UW01412

PATIENT
  Age: 9289 Day
  Sex: Male
  Weight: 81.4 kg

DRUGS (1)
  1. SEROQUEL [Suspect]
     Indication: POST-TRAUMATIC STRESS DISORDER
     Route: 048
     Dates: start: 20031021, end: 20040909

REACTIONS (9)
  - BRONCHITIS [None]
  - CARBUNCLE [None]
  - CELLULITIS [None]
  - DIABETIC HYPERGLYCAEMIC COMA [None]
  - DIABETIC KETOACIDOSIS [None]
  - PNEUMONIA [None]
  - RHINITIS ALLERGIC [None]
  - TYPE 1 DIABETES MELLITUS [None]
  - WOUND [None]
